FAERS Safety Report 4509558-5 (Version None)
Quarter: 2004Q4

REPORT INFORMATION
  Report Type: 
  Country: None (occurrence: None)
  Receive Date: 20041119
  Receipt Date: 20041102
  Transmission Date: 20050328
  Serious: Yes (Death)
  Sender: FDA-Public Use
  Company Number: US_0411107853

PATIENT
  Age: 62 Year
  Sex: Male

DRUGS (1)
  1. INSULIN-INSULIN-ANIMAL (UNKNOWN FORMULATION) (INSUL [Suspect]
     Indication: DIABETES MELLITUS

REACTIONS (1)
  - ARTERIOSCLEROSIS [None]
